FAERS Safety Report 19390193 (Version 4)
Quarter: 2021Q3

REPORT INFORMATION
  Report Type: Report from Study
  Country: US (occurrence: US)
  Receive Date: 20210608
  Receipt Date: 20210720
  Transmission Date: 20211014
  Serious: Yes (Life-Threatening, Hospitalization, Disabling, Other)
  Sender: FDA-Public Use
  Company Number: NVSC2021US126677

PATIENT
  Age: 2 Year
  Sex: Male
  Weight: 20 kg

DRUGS (3)
  1. GSK1120212 [Suspect]
     Active Substance: TRAMETINIB
     Indication: ASTROCYTOMA
     Dosage: 0.025 MG/KG
     Route: 048
     Dates: start: 20180404
  2. GSK1120212 [Suspect]
     Active Substance: TRAMETINIB
     Dosage: 0.025 MG/KG
     Route: 048
     Dates: start: 20180627, end: 20200505
  3. AVASTIN [Suspect]
     Active Substance: BEVACIZUMAB
     Indication: PRODUCT USED FOR UNKNOWN INDICATION
     Dosage: UNK
     Route: 065

REACTIONS (76)
  - Parainfluenzae virus infection [Recovered/Resolved]
  - Hypokalaemia [Recovered/Resolved]
  - Blood urea increased [Unknown]
  - Proteinuria [Recovered/Resolved]
  - Rhinitis [Recovered/Resolved]
  - Ocular hyperaemia [Unknown]
  - Nausea [Not Recovered/Not Resolved]
  - Pleural effusion [Recovered/Resolved]
  - Acute kidney injury [Recovered/Resolved]
  - Mental status changes [Unknown]
  - Dry skin [Recovered/Resolved]
  - Diarrhoea [Recovered/Resolved]
  - Blood creatine phosphokinase increased [Recovered/Resolved]
  - Hypophosphataemia [Recovered/Resolved]
  - Iron deficiency anaemia [Recovered/Resolved]
  - Platelet count decreased [Recovered/Resolved]
  - Urine output increased [Recovered/Resolved]
  - Upper respiratory tract infection [Recovered/Resolved]
  - Nasopharyngitis [Unknown]
  - Pyrexia [Recovered/Resolved]
  - Ileus [Unknown]
  - Blood calcium decreased [Unknown]
  - Lymphocyte count increased [Recovered/Resolved]
  - Nausea [Recovered/Resolved]
  - Dehydration [Recovered/Resolved]
  - Diarrhoea [Recovered/Resolved]
  - Hyperkalaemia [Recovered/Resolved]
  - Vomiting [Recovered/Resolved]
  - Diarrhoea [Not Recovered/Not Resolved]
  - Hyperphagia [Not Recovered/Not Resolved]
  - Oedema [Recovered/Resolved]
  - Vomiting [Recovered/Resolved]
  - Cough [Unknown]
  - Irritability [Unknown]
  - Dyskinesia [Recovered/Resolved]
  - Tachycardia [Recovered/Resolved]
  - Septic shock [Recovered/Resolved]
  - Rhinorrhoea [Recovered/Resolved]
  - Blood creatinine increased [Unknown]
  - Influenza [Unknown]
  - Lymphocyte count decreased [Recovered/Resolved]
  - Acidosis [Recovered/Resolved]
  - Dermatitis diaper [Recovered/Resolved]
  - Weight increased [Not Recovered/Not Resolved]
  - Polyuria [Recovered/Resolved]
  - Upper respiratory tract infection [Recovered/Resolved]
  - Decreased appetite [Unknown]
  - Pyrexia [Recovered/Resolved]
  - Vomiting [Recovered/Resolved]
  - Periorbital oedema [Recovered/Resolved]
  - Penile pain [Recovered/Resolved]
  - Agitation [Unknown]
  - Hypocalcaemia [Recovered/Resolved]
  - Blood alkaline phosphatase increased [Recovered/Resolved]
  - Aspartate aminotransferase increased [Recovered/Resolved]
  - Abdominal pain [Recovered/Resolved]
  - Gait disturbance [Recovered/Resolved]
  - Joint effusion [Unknown]
  - Ear discomfort [Unknown]
  - Malaise [Recovered/Resolved]
  - Eye swelling [Unknown]
  - Urticaria [Recovered/Resolved]
  - Penile discharge [Recovered/Resolved]
  - Hypoxia [Recovered/Resolved]
  - Pneumonia [Unknown]
  - Hypopnoea [Unknown]
  - Hypercalcaemia [Recovered/Resolved]
  - Fatigue [Unknown]
  - Epistaxis [Recovered/Resolved]
  - Alanine aminotransferase increased [Unknown]
  - Hypoalbuminaemia [Recovered/Resolved]
  - Constipation [Not Recovered/Not Resolved]
  - Pain in extremity [Recovered/Resolved]
  - Oedema peripheral [Recovered/Resolved]
  - Oedema genital [Not Recovered/Not Resolved]
  - Polydipsia [Recovered/Resolved]

NARRATIVE: CASE EVENT DATE: 20180328
